FAERS Safety Report 7288786-2 (Version None)
Quarter: 2011Q1

REPORT INFORMATION
  Report Type: 
  Country: None (occurrence: None)
  Receive Date: 20110211
  Receipt Date: 20110204
  Transmission Date: 20110831
  Serious: Yes (Hospitalization)
  Sender: FDA-Public Use
  Company Number: IT-PFIZER INC-2011021701

PATIENT
  Age: 72 Year
  Sex: Male

DRUGS (3)
  1. CARDURA [Suspect]
     Indication: HYPERTENSION
     Dosage: 2 G (AS REPORTED), UNK
     Route: 048
     Dates: start: 20110117, end: 20110117
  2. LASIX [Concomitant]
     Dosage: 25MG, UNK
  3. LOBIVON [Interacting]
     Dosage: 5MG, UNK

REACTIONS (3)
  - DRUG INTERACTION [None]
  - SYNCOPE [None]
  - URINARY INCONTINENCE [None]
